FAERS Safety Report 5401581-1 (Version None)
Quarter: 2007Q3

REPORT INFORMATION
  Report Type: 
  Country: None (occurrence: None)
  Receive Date: 20070731
  Receipt Date: 20070718
  Transmission Date: 20080115
  Serious: Yes (Death)
  Sender: FDA-Public Use
  Company Number: US-PURDUE-USA_2007_0028353

PATIENT
  Sex: Female

DRUGS (3)
  1. HYDROMORPHONE HCL [Suspect]
     Indication: DRUG ABUSER
     Dosage: UNK MG, UNK
     Route: 048
  2. XANAX [Suspect]
     Indication: DRUG ABUSER
     Dosage: UNK MG, UNK
     Route: 048
  3. HYDROCODONE BITARTRATE [Suspect]
     Indication: DRUG ABUSER
     Dosage: UNK MG, UNK
     Route: 048

REACTIONS (2)
  - ASPHYXIA [None]
  - VICTIM OF HOMICIDE [None]
